FAERS Safety Report 20810098 (Version 1)
Quarter: 2022Q2

REPORT INFORMATION
  Report Type: Spontaneous
  Country: US (occurrence: US)
  Receive Date: 20220510
  Receipt Date: 20220510
  Transmission Date: 20220721
  Serious: No
  Sender: FDA-Public Use
  Company Number: US-OYSTER POINT PHARMA, INC.-2022OYS00183

PATIENT
  Sex: Female

DRUGS (3)
  1. TYRVAYA [Suspect]
     Active Substance: VARENICLINE TARTRATE
     Indication: Dry eye
     Dosage: 1 SPRAY, EACH NOSTRIL, 2X/DAY (12 HOURS APART)
     Route: 045
     Dates: start: 20220224
  2. ORACEA [Concomitant]
     Active Substance: DOXYCYCLINE
     Dosage: 40 MG, 1X/DAY
  3. CEQUA [Concomitant]
     Active Substance: CYCLOSPORINE
     Dosage: 1 DROP, EACH EYE, 2X/DAY
     Route: 047

REACTIONS (6)
  - Retching [Recovered/Resolved]
  - Rhinalgia [Recovered/Resolved]
  - Vision blurred [Not Recovered/Not Resolved]
  - Oropharyngeal pain [Recovered/Resolved]
  - Lacrimation increased [Recovering/Resolving]
  - Sneezing [Recovered/Resolved]

NARRATIVE: CASE EVENT DATE: 20220224
